FAERS Safety Report 14046683 (Version 1)
Quarter: 2017Q4

REPORT INFORMATION
  Report Type: Spontaneous
  Country: US (occurrence: None)
  Receive Date: 20171004
  Receipt Date: 20171004
  Transmission Date: 20180321
  Serious: Yes (Hospitalization, Disabling)
  Sender: FDA-Public Use
  Company Number: None

PATIENT
  Age: 73 Year
  Sex: Male
  Weight: 73.48 kg

DRUGS (15)
  1. TEMAZEPAM. [Concomitant]
     Active Substance: TEMAZEPAM
  2. SERTRALINE [Concomitant]
     Active Substance: SERTRALINE HYDROCHLORIDE
  3. MULTIVITAMIN [Concomitant]
     Active Substance: VITAMINS
  4. VITAMIN E [Concomitant]
     Active Substance: .ALPHA.-TOCOPHEROL
  5. LISINOPRIL. [Concomitant]
     Active Substance: LISINOPRIL
  6. TRAMADOL. [Concomitant]
     Active Substance: TRAMADOL
  7. MAGNESIUM [Concomitant]
     Active Substance: MAGNESIUM
  8. TRAZODONE [Concomitant]
     Active Substance: TRAZODONE HYDROCHLORIDE
  9. OMEGA-3 ACIDS [Concomitant]
     Active Substance: OMEGA-3 FATTY ACIDS
  10. VITAMIN C [Concomitant]
     Active Substance: ASCORBIC ACID
  11. FOLIC ACID. [Concomitant]
     Active Substance: FOLIC ACID
  12. DR. SHEFFIELDS NASAL SPRAY (OXYMETAZOLINE HCL) [Suspect]
     Active Substance: OXYMETAZOLINE HYDROCHLORIDE
     Indication: NASAL CONGESTION
     Dosage: 05% SOLUTION 2 SPRAYS TWICE DAILY NOSTRILS -} NOSE
     Route: 045
     Dates: start: 20170510, end: 20170716
  13. CLONIDINE. [Concomitant]
     Active Substance: CLONIDINE
  14. HYDRALAZINE [Concomitant]
     Active Substance: HYDRALAZINE HYDROCHLORIDE
  15. ALPRAZOLAM. [Concomitant]
     Active Substance: ALPRAZOLAM

REACTIONS (4)
  - Heart rate increased [None]
  - Blood pressure systolic increased [None]
  - Ageusia [None]
  - Anosmia [None]

NARRATIVE: CASE EVENT DATE: 20170709
